FAERS Safety Report 13064638 (Version 1)
Quarter: 2016Q4

REPORT INFORMATION
  Report Type: Spontaneous
  Country: CN (occurrence: CN)
  Receive Date: 20161227
  Receipt Date: 20161227
  Transmission Date: 20170207
  Serious: Yes (Other)
  Sender: FDA-Public Use
  Company Number: CN-BAYER-2016-243022

PATIENT
  Age: 33 Year
  Sex: Female

DRUGS (1)
  1. CLARITYNE 10 MG [Suspect]
     Active Substance: LORATADINE
     Indication: URTICARIA
     Dosage: TAKEN THE DRUG FOR 2 OR 3 MONTHS
     Route: 048
     Dates: start: 2016

REACTIONS (3)
  - Urticaria [None]
  - Maternal exposure during pregnancy [None]
  - Drug dependence [None]

NARRATIVE: CASE EVENT DATE: 2016
